FAERS Safety Report 14089894 (Version 1)
Quarter: 2017Q4

REPORT INFORMATION
  Report Type: Spontaneous
  Country: US (occurrence: US)
  Receive Date: 20171014
  Receipt Date: 20171014
  Transmission Date: 20180321
  Serious: No
  Sender: FDA-Public Use
  Company Number: US-SA-2017SA133075

PATIENT
  Sex: Female

DRUGS (1)
  1. AUBAGIO [Suspect]
     Active Substance: TERIFLUNOMIDE
     Indication: MULTIPLE SCLEROSIS
     Route: 048
     Dates: start: 20160309

REACTIONS (6)
  - Balance disorder [Unknown]
  - Drug ineffective [Unknown]
  - Memory impairment [Unknown]
  - Female orgasmic disorder [Unknown]
  - Irritability [Unknown]
  - Dizziness [Unknown]
